FAERS Safety Report 8299705-4 (Version None)
Quarter: 2012Q2

REPORT INFORMATION
  Report Type: 
  Country: None (occurrence: None)
  Receive Date: 20120419
  Receipt Date: 20120409
  Transmission Date: 20120825
  Serious: Yes (Hospitalization, Other)
  Sender: FDA-Public Use
  Company Number: TR-ROCHE-1040487

PATIENT
  Sex: Female
  Weight: 75 kg

DRUGS (1)
  1. LUCENTIS [Suspect]
     Indication: VISUAL IMPAIRMENT
     Route: 050
     Dates: start: 20120108

REACTIONS (3)
  - CARDIAC DISORDER [None]
  - DYSPNOEA [None]
  - COUGH [None]
